FAERS Safety Report 12902304 (Version 1)
Quarter: 2016Q4

REPORT INFORMATION
  Report Type: Spontaneous
  Country: US (occurrence: US)
  Receive Date: 20161102
  Receipt Date: 20161102
  Transmission Date: 20170207
  Serious: Yes (Hospitalization)
  Sender: FDA-Public Use
  Company Number: US-BAUSCH-BL-2016-026618

PATIENT
  Age: 63 Year
  Sex: Male

DRUGS (1)
  1. XIFAXAN [Suspect]
     Active Substance: RIFAXIMIN
     Indication: HEPATIC CIRRHOSIS
     Route: 065
     Dates: start: 2016

REACTIONS (3)
  - Confusional state [Unknown]
  - Ammonia increased [Unknown]
  - Fatigue [Unknown]

NARRATIVE: CASE EVENT DATE: 20160724
